FAERS Safety Report 8848712 (Version 1)
Quarter: 2012Q4

REPORT INFORMATION
  Report Type: Spontaneous
  Country: US (occurrence: None)
  Receive Date: 20121017
  Receipt Date: 20121017
  Transmission Date: 20130627
  Serious: Yes (Other)
  Sender: FDA-Public Use
  Company Number: None

PATIENT
  Age: 44 Year
  Sex: Male
  Weight: 65.32 kg

DRUGS (1)
  1. CIMZIA [Suspect]

REACTIONS (2)
  - Convulsion [None]
  - Condition aggravated [None]
